FAERS Safety Report 4955435-5 (Version None)
Quarter: 2006Q1

REPORT INFORMATION
  Report Type: 
  Country: None (occurrence: None)
  Receive Date: 20060328
  Receipt Date: 20051220
  Transmission Date: 20060701
  Serious: Yes (Death, Life-Threatening, Hospitalization, Other)
  Sender: FDA-Public Use
  Company Number: US-AVENTIS-200520727US

PATIENT
  Sex: Female
  Weight: 60.7 kg

DRUGS (5)
  1. ARAVA [Suspect]
     Indication: RHEUMATOID ARTHRITIS
     Dates: start: 20030101, end: 20051207
  2. POTASSIUM [Concomitant]
  3. PREDNISONE [Concomitant]
  4. COUMADIN [Concomitant]
     Dosage: DOSE: 2-3
  5. FERROUS SULFATE TAB [Concomitant]
     Route: 048

REACTIONS (31)
  - ANAEMIA [None]
  - APHASIA [None]
  - AREFLEXIA [None]
  - CAVERNOUS SINUS THROMBOSIS [None]
  - COMA [None]
  - CONTUSION [None]
  - DEEP VEIN THROMBOSIS [None]
  - DIARRHOEA [None]
  - ECCHYMOSIS [None]
  - EPISTAXIS [None]
  - FAECES DISCOLOURED [None]
  - FALSE POSITIVE LABORATORY RESULT [None]
  - HAEMATOCRIT DECREASED [None]
  - HAEMATOMA [None]
  - HAEMOGLOBIN DECREASED [None]
  - HAEMOPTYSIS [None]
  - HAEMORRHAGE INTRACRANIAL [None]
  - HEADACHE [None]
  - HEMIPARESIS [None]
  - IDIOPATHIC THROMBOCYTOPENIC PURPURA [None]
  - INJECTION SITE HAEMORRHAGE [None]
  - INTERNATIONAL NORMALISED RATIO INCREASED [None]
  - MEGAKARYOCYTES ABNORMAL [None]
  - MYALGIA [None]
  - MYDRIASIS [None]
  - PAIN IN EXTREMITY [None]
  - PLATELET COUNT DECREASED [None]
  - PYREXIA [None]
  - SINUSITIS [None]
  - SINUSITIS FUNGAL [None]
  - VOMITING [None]
